FAERS Safety Report 9485444 (Version 2)
Quarter: 2013Q3

REPORT INFORMATION
  Report Type: Spontaneous
  Country: US (occurrence: US)
  Receive Date: 20130829
  Receipt Date: 20130829
  Transmission Date: 20140515
  Serious: Yes (Other)
  Sender: FDA-Public Use
  Company Number: US-BIOGENIDEC-2013BI005550

PATIENT
  Age: 61 Year
  Sex: Female

DRUGS (11)
  1. AVONEX [Suspect]
     Indication: MULTIPLE SCLEROSIS
     Route: 030
  2. AVONEX [Suspect]
     Indication: MULTIPLE SCLEROSIS
     Route: 030
     Dates: start: 20000101
  3. AVONEX [Suspect]
     Indication: MULTIPLE SCLEROSIS
     Route: 030
     Dates: start: 20001230
  4. AVONEX [Suspect]
     Indication: MULTIPLE SCLEROSIS
     Route: 030
     Dates: start: 20070604, end: 2012
  5. AVONEX [Suspect]
     Indication: MULTIPLE SCLEROSIS
     Route: 030
     Dates: start: 2012
  6. DETROL [Concomitant]
     Indication: URINARY INCONTINENCE
     Dates: start: 1990
  7. GABAPENTIN [Concomitant]
     Indication: PARAESTHESIA
  8. NAPROXEN [Concomitant]
     Indication: PREMEDICATION
  9. NAPROXEN [Concomitant]
     Indication: DRUG THERAPY
  10. CYMBALTA [Concomitant]
     Indication: DEPRESSION
     Dates: start: 2011
  11. EFFEXOR [Concomitant]
     Indication: DEPRESSION

REACTIONS (11)
  - Knee arthroplasty [Recovered/Resolved]
  - Spinal fusion surgery [Unknown]
  - Back pain [Recovered/Resolved]
  - Wrist fracture [Recovered/Resolved]
  - Posture abnormal [Recovered/Resolved]
  - Spondylitis [Not Recovered/Not Resolved]
  - Memory impairment [Not Recovered/Not Resolved]
  - Balance disorder [Unknown]
  - Diarrhoea [Recovered/Resolved]
  - Depression [Not Recovered/Not Resolved]
  - Influenza like illness [Recovered/Resolved]
